FAERS Safety Report 13734646 (Version 3)
Quarter: 2017Q3

REPORT INFORMATION
  Report Type: Report from Study
  Country: None (occurrence: TW)
  Receive Date: 20170709
  Receipt Date: 20170807
  Transmission Date: 20171127
  Serious: Yes (Hospitalization, Other)
  Sender: FDA-Public Use
  Company Number: TW-ABBVIE-17K-153-2031486-00

PATIENT
  Age: 53 Year
  Sex: Male
  Weight: 50 kg

DRUGS (4)
  1. IMURAN [Concomitant]
     Active Substance: AZATHIOPRINE
     Indication: CROHN^S DISEASE
     Route: 048
     Dates: start: 20130912
  2. PENTASA [Concomitant]
     Active Substance: MESALAMINE
     Indication: CROHN^S DISEASE
     Route: 048
     Dates: start: 20130912
  3. HUMIRA [Suspect]
     Active Substance: ADALIMUMAB
     Indication: CROHN^S DISEASE
     Dosage: STANDARD TITRATION
     Route: 058
     Dates: start: 20161202, end: 20170622
  4. HUMIRA [Suspect]
     Active Substance: ADALIMUMAB
     Route: 058
     Dates: start: 20170713

REACTIONS (13)
  - Lipoma [Unknown]
  - Spinal osteoarthritis [Unknown]
  - Flatulence [Unknown]
  - Angiomyolipoma [Unknown]
  - Enterococcal gastroenteritis [Recovering/Resolving]
  - Metastases to liver [Unknown]
  - Gastrointestinal wall thickening [Unknown]
  - Diverticulum intestinal [Unknown]
  - Intestinal fistula [Unknown]
  - Hepatic cyst [Unknown]
  - Abdominal distension [Recovering/Resolving]
  - Abdominal distension [Unknown]
  - Anal fistula [Recovering/Resolving]

NARRATIVE: CASE EVENT DATE: 201704
